FAERS Safety Report 6793962-9 (Version None)
Quarter: 2010Q2

REPORT INFORMATION
  Report Type: 
  Country: None (occurrence: None)
  Receive Date: 20100624
  Receipt Date: 20060417
  Transmission Date: 20101027
  Serious: No
  Sender: FDA-Public Use
  Company Number: JP-PFIZER INC-23100281

PATIENT
  Sex: Male

DRUGS (8)
  1. ARGATROBAN [Suspect]
     Indication: CEREBRAL INFARCTION
     Dosage: FREQUENCY:  QD
     Route: 042
     Dates: start: 20051109, end: 20051111
  2. ACETYLSALICYLIC ACID [Concomitant]
     Indication: CEREBRAL INFARCTION
     Dosage: FREQUENCY:  QD
     Route: 048
     Dates: start: 20051110
  3. FAMOTIDINE [Concomitant]
     Indication: PROPHYLAXIS AGAINST GASTROINTESTINAL ULCER
     Dosage: INTERVAL:  QD
     Route: 048
     Dates: start: 20051110
  4. ZOPICLONE [Concomitant]
     Indication: INSOMNIA
     Dosage: FREQUENCY:  QD
     Route: 048
     Dates: start: 20051110
  5. AMLODIPINE BESYLATE [Concomitant]
     Indication: PROPHYLAXIS
     Dosage: FREQUENCY:  QD
     Route: 048
     Dates: start: 20051112
  6. SOLDEM [Concomitant]
     Indication: MEDICATION DILUTION
     Dosage: FREQUENCY:  QD
     Route: 042
     Dates: start: 20051109, end: 20051111
  7. SOLDEM [Concomitant]
     Dosage: FREQUENCY:  BID
     Route: 042
     Dates: start: 20051112, end: 20051116
  8. CANDESARTAN CILEXETIL [Concomitant]
     Indication: HYPERTENSION
     Dosage: FREQUENCY:  QD
     Route: 048
     Dates: start: 20051115

REACTIONS (1)
  - SYNOVITIS [None]
